FAERS Safety Report 4795855-5 (Version None)
Quarter: 2005Q4

REPORT INFORMATION
  Report Type: 
  Country: None (occurrence: None)
  Receive Date: 20051012
  Receipt Date: 20050927
  Transmission Date: 20060501
  Serious: Yes (Other)
  Sender: FDA-Public Use
  Company Number: US-AMGEN-US152134

PATIENT
  Sex: Female

DRUGS (9)
  1. ENBREL [Suspect]
     Indication: PSORIASIS
     Dates: start: 20031203
  2. AZATHIOPRINE [Suspect]
  3. CELEBREX [Concomitant]
  4. DETROL [Concomitant]
  5. NORVASC [Concomitant]
  6. ZOLOFT [Concomitant]
  7. PRILOSEC [Concomitant]
  8. PROMETRIUM [Concomitant]
  9. ESTRADIOL [Concomitant]

REACTIONS (2)
  - ALANINE AMINOTRANSFERASE INCREASED [None]
  - ASPARTATE AMINOTRANSFERASE INCREASED [None]
